FAERS Safety Report 16096231 (Version 3)
Quarter: 2019Q2

REPORT INFORMATION
  Report Type: Report from Study
  Country: US (occurrence: US)
  Receive Date: 20190320
  Receipt Date: 20190402
  Transmission Date: 20190711
  Serious: Yes (Death, Hospitalization, Other)
  Sender: FDA-Public Use
  Company Number: US-GILEAD-2019-0397263

PATIENT
  Age: 55 Year
  Sex: Male
  Weight: 104.76 kg

DRUGS (8)
  1. SOFOSBUVIR W/VELPATASVIR [Suspect]
     Active Substance: SOFOSBUVIR\VELPATASVIR
     Indication: CHRONIC HEPATITIS C
     Dosage: 1 DF, QD
     Route: 048
     Dates: start: 20190307, end: 20190313
  2. XANAX [Concomitant]
     Active Substance: ALPRAZOLAM
  3. CATAPRES-TTS [Concomitant]
     Active Substance: CLONIDINE
  4. VINCRISTINE [Concomitant]
     Active Substance: VINCRISTINE
     Indication: ACUTE LYMPHOCYTIC LEUKAEMIA
     Dosage: UNK
     Route: 042
     Dates: start: 20190304, end: 20190304
  5. DAUNORUBICIN [Concomitant]
     Active Substance: DAUNORUBICIN
     Indication: ACUTE LYMPHOCYTIC LEUKAEMIA
     Dosage: UNK
     Route: 042
     Dates: start: 20190304, end: 20190304
  6. LEVEMIR [Concomitant]
     Active Substance: INSULIN DETEMIR
  7. HUMALOG [Concomitant]
     Active Substance: INSULIN LISPRO
  8. KLOR-CON M20 [Concomitant]
     Active Substance: POTASSIUM CHLORIDE

REACTIONS (4)
  - Diarrhoea [Unknown]
  - Septic shock [Fatal]
  - Vomiting [Unknown]
  - Abdominal pain [Unknown]

NARRATIVE: CASE EVENT DATE: 20190313
